FAERS Safety Report 21528606 (Version 1)
Quarter: 2022Q4

REPORT INFORMATION
  Report Type: Spontaneous
  Country: IT (occurrence: IT)
  Receive Date: 20221031
  Receipt Date: 20221031
  Transmission Date: 20230112
  Serious: Yes (Other)
  Sender: FDA-Public Use
  Company Number: None

PATIENT
  Age: 48 Year
  Sex: Male
  Weight: 82 kg

DRUGS (1)
  1. TALTZ [Suspect]
     Active Substance: IXEKIZUMAB
     Indication: Psoriasis
     Dosage: 2 PP 80 MG ALLA SETTIMANA 0, POI 1PP 80 MG ALLA SETTIMANA 2,4,6,8,10,12, POI 1PP 80 MG / 4 SETTIMANE
     Route: 058
     Dates: start: 20181220, end: 20220621

REACTIONS (2)
  - Eczema [Unknown]
  - Loss of therapeutic response [Unknown]

NARRATIVE: CASE EVENT DATE: 20220724
